FAERS Safety Report 18651051 (Version 2)
Quarter: 2021Q1

REPORT INFORMATION
  Report Type: Spontaneous
  Country: JP (occurrence: JP)
  Receive Date: 20201223
  Receipt Date: 20210203
  Transmission Date: 20210419
  Serious: Yes (Other)
  Sender: FDA-Public Use
  Company Number: JP-JNJFOC-20201240024

PATIENT
  Age: 3 Decade
  Sex: Male

DRUGS (4)
  1. REMICADE [Suspect]
     Active Substance: INFLIXIMAB
     Indication: CROHN^S DISEASE
     Dosage: 5 MILLIGRAM/KILOGRAM, Q8WEEKS
     Route: 042
  2. REMICADE [Suspect]
     Active Substance: INFLIXIMAB
     Dosage: DOUBLE DOSE
     Route: 042
  3. AZATHIOPRINE. [Suspect]
     Active Substance: AZATHIOPRINE
     Indication: CROHN^S DISEASE
     Route: 048
  4. MESALAZINE [Concomitant]
     Active Substance: MESALAMINE
     Indication: CROHN^S DISEASE
     Route: 048

REACTIONS (2)
  - Cytomegalovirus test positive [Recovered/Resolved]
  - Drug hypersensitivity [Recovering/Resolving]
